FAERS Safety Report 23951266 (Version 1)
Quarter: 2024Q2

REPORT INFORMATION
  Report Type: Spontaneous
  Country: DK (occurrence: DK)
  Receive Date: 20240607
  Receipt Date: 20240607
  Transmission Date: 20240716
  Serious: Yes (Hospitalization)
  Sender: FDA-Public Use
  Company Number: DK-AMERICAN REGENT INC-2024002071

PATIENT
  Age: 81 Year
  Sex: Male

DRUGS (6)
  1. VENOFER [Suspect]
     Active Substance: IRON SUCROSE
     Indication: Product used for unknown indication
     Dosage: UNK, FOR 6 WEEKS 1 IN WK
  2. DENOSUMAB [Concomitant]
     Active Substance: DENOSUMAB
     Indication: Hip fracture
     Dosage: UNK
     Route: 042
  3. DENOSUMAB [Concomitant]
     Active Substance: DENOSUMAB
     Indication: Spinal fracture
  4. ALFACALCIDOL [Concomitant]
     Active Substance: ALFACALCIDOL
     Indication: Product used for unknown indication
     Dosage: ON DIALYSIS DAYS, 0.25 MG 3 IN 1 WK
     Route: 065
  5. ALFACALCIDOL [Concomitant]
     Active Substance: ALFACALCIDOL
     Dosage: 6 MICROGRAM
     Route: 065
  6. CHOLECALCIFEROL [Concomitant]
     Active Substance: CHOLECALCIFEROL
     Indication: Product used for unknown indication
     Dosage: 0.625 MILLIGRAM, 1 IN 2WK
     Route: 065

REACTIONS (1)
  - Hypophosphataemia [Unknown]
